FAERS Safety Report 14652306 (Version 1)
Quarter: 2018Q1

REPORT INFORMATION
  Report Type: Report from Study
  Country: DE (occurrence: DE)
  Receive Date: 20180318
  Receipt Date: 20180318
  Transmission Date: 20180509
  Serious: Yes (Hospitalization, Other)
  Sender: FDA-Public Use
  Company Number: PHHY2018DE017422

PATIENT
  Sex: Male
  Weight: 73 kg

DRUGS (17)
  1. PANTOPRAZOLE SODIUM. [Concomitant]
     Active Substance: PANTOPRAZOLE SODIUM
     Indication: GASTRIC DISORDER
     Dosage: 80 MG, QD
     Route: 048
  2. TAMSULOSIN AL [Concomitant]
     Indication: PROSTATIC DISORDER
     Dosage: 0.4 MG, QD
     Route: 048
  3. TORASEMID 1A PHARMA [Suspect]
     Active Substance: TORSEMIDE
     Dosage: 20 OT, UNK
     Route: 048
     Dates: start: 20180301
  4. NOVAMINOSULFON [Concomitant]
     Active Substance: METAMIZOLE SODIUM
     Indication: PAIN
     Dosage: 90 MG, QD
     Route: 048
  5. ENTRESTO [Suspect]
     Active Substance: SACUBITRIL\VALSARTAN
     Indication: CARDIAC DISORDER
     Dosage: 50 MG, QD
     Route: 048
     Dates: end: 20180215
  6. LIXIANA [Suspect]
     Active Substance: EDOXABAN TOSYLATE
     Indication: CARDIAC DISORDER
     Dosage: 60 MG, QD
     Route: 048
  7. XIPAMID RATIOPHARM [Concomitant]
     Indication: DIURETIC THERAPY
     Dosage: 10 MG, QD
     Route: 048
     Dates: start: 20180112
  8. PREDNI H [Concomitant]
     Active Substance: PREDNISOLONE
     Indication: PAIN
     Dosage: 5 MG, QD
     Route: 048
     Dates: start: 20180201
  9. MOVICOL [Concomitant]
     Active Substance: POLYETHYLENE GLYCOL 3350\POTASSIUM CHLORIDE\SODIUM BICARBONATE\SODIUM CHLORIDE
     Indication: PRODUCT USED FOR UNKNOWN INDICATION
     Route: 048
  10. TORASEMID 1A PHARMA [Suspect]
     Active Substance: TORSEMIDE
     Indication: CARDIAC FAILURE CHRONIC
     Dosage: 30 MG, QD
     Route: 048
     Dates: start: 20160101, end: 20180228
  11. PARACETAMOL RATIOPHARM [Concomitant]
     Active Substance: ACETAMINOPHEN
     Indication: ANALGESIC THERAPY
     Dosage: 3000 MG, QD
     Route: 048
     Dates: start: 20180123
  12. ALLOPURINOL. [Concomitant]
     Active Substance: ALLOPURINOL
     Indication: BLOOD URIC ACID ABNORMAL
     Dosage: 200 MG, QD
     Route: 048
  13. PARACETAMOL RATIOPHARM [Concomitant]
     Active Substance: ACETAMINOPHEN
     Indication: OSTEOARTHRITIS
  14. METOPROLOL 1A PHARMA [Concomitant]
     Active Substance: METOPROLOL
     Indication: BLOOD PRESSURE ABNORMAL
     Dosage: 47.50 MG, QD
     Route: 048
  15. METOPROLOL 1A PHARMA [Concomitant]
     Active Substance: METOPROLOL
     Indication: CARDIAC DISORDER
  16. DIGIMERCK MINOR [Concomitant]
     Indication: CARDIAC DISORDER
     Dosage: 0.07 MG, QD
     Route: 048
  17. ACC [Concomitant]
     Active Substance: ACETYLCYSTEINE
     Indication: PRODUCT USED FOR UNKNOWN INDICATION
     Dosage: 600 MG, QD
     Route: 048

REACTIONS (17)
  - Cardiac disorder [Not Recovered/Not Resolved]
  - Fatigue [Not Recovered/Not Resolved]
  - Dizziness postural [Not Recovered/Not Resolved]
  - Weight decreased [Unknown]
  - Tremor [Not Recovered/Not Resolved]
  - Cough [Not Recovered/Not Resolved]
  - Chills [Not Recovered/Not Resolved]
  - Dyspnoea [Not Recovered/Not Resolved]
  - Pneumonia [Not Recovered/Not Resolved]
  - Viral infection [Not Recovered/Not Resolved]
  - Influenza [Unknown]
  - Haemorrhage [Unknown]
  - Oedema peripheral [Unknown]
  - General physical health deterioration [Unknown]
  - Pollakiuria [Not Recovered/Not Resolved]
  - Defaecation disorder [Recovered/Resolved]
  - Weight increased [Not Recovered/Not Resolved]

NARRATIVE: CASE EVENT DATE: 2016
